FAERS Safety Report 7293760-6 (Version None)
Quarter: 2011Q1

REPORT INFORMATION
  Report Type: 
  Country: None (occurrence: None)
  Receive Date: 20110215
  Receipt Date: 20110208
  Transmission Date: 20110831
  Serious: Yes (Death, Other)
  Sender: FDA-Public Use
  Company Number: TN-SANOFI-AVENTIS-2011SA008529

PATIENT
  Age: 55 Year
  Sex: Male

DRUGS (14)
  1. PLAVIX [Suspect]
     Dosage: 600 MG FOR 2 DAYS (=8 TABLETS FOR 2 DAYS)
     Route: 048
     Dates: start: 20100713, end: 20100714
  2. CARVEDILOL [Concomitant]
     Route: 048
     Dates: end: 20100806
  3. ROSUVASTATIN [Concomitant]
     Route: 048
     Dates: end: 20100806
  4. CORVASAL [Concomitant]
     Route: 048
     Dates: end: 20100806
  5. GLUCOPHAGE [Concomitant]
     Route: 048
     Dates: end: 20100806
  6. INSULIN [Concomitant]
     Route: 048
     Dates: end: 20100806
  7. PLAVIX [Suspect]
     Dosage: 300 MG FOR 2 DAYS (=4 TABLETS FOR 2 DAYS)
     Route: 048
     Dates: start: 20100715
  8. PLAVIX [Suspect]
     Dosage: 600 MG FOR 2 DAYS (=8 TABLETS FOR 2 DAYS)
     Route: 048
     Dates: start: 20100713, end: 20100714
  9. PLAVIX [Suspect]
     Route: 048
  10. CAPTOPRIL [Concomitant]
     Route: 048
     Dates: end: 20100806
  11. ASPIRIN [Concomitant]
     Route: 048
     Dates: end: 20100806
  12. PLAVIX [Suspect]
     Dosage: 300 MG FOR 2 DAYS (=4 TABLETS FOR 2 DAYS)
     Route: 048
     Dates: start: 20100715
  13. PLAVIX [Suspect]
     Route: 048
  14. LASIX [Concomitant]
     Route: 048
     Dates: end: 20100806

REACTIONS (3)
  - ACUTE PULMONARY OEDEMA [None]
  - THROMBOSIS IN DEVICE [None]
  - OVERDOSE [None]
